FAERS Safety Report 17841650 (Version 4)
Quarter: 2021Q4

REPORT INFORMATION
  Report Type: Report from Study
  Country: EG (occurrence: EG)
  Receive Date: 20200529
  Receipt Date: 20211006
  Transmission Date: 20220303
  Serious: Yes (Other)
  Sender: FDA-Public Use
  Company Number: EG-ELI_LILLY_AND_COMPANY-EG202005005435

PATIENT
  Age: 71 Year
  Sex: Female

DRUGS (10)
  1. FORTEO [Suspect]
     Active Substance: TERIPARATIDE
     Indication: Osteoporosis
     Dosage: 20 UG, DAILY
     Route: 058
     Dates: start: 20160427, end: 20160729
  2. FORTEO [Suspect]
     Active Substance: TERIPARATIDE
     Indication: Bone disorder
     Dosage: 20 UG, DAILY
     Route: 058
     Dates: start: 20190513
  3. FORTEO [Suspect]
     Active Substance: TERIPARATIDE
     Dosage: 20 UG, DAILY
     Route: 058
     Dates: start: 20200511, end: 20201108
  4. FORTEO [Suspect]
     Active Substance: TERIPARATIDE
     Dosage: 20 UG, DAILY
     Route: 058
     Dates: start: 20210927
  5. TRYPTIZOL [Suspect]
     Active Substance: AMITRIPTYLINE HYDROCHLORIDE
     Indication: Product used for unknown indication
     Dosage: 10 MG, DAILY
     Route: 065
  6. CANDESARTAN CILEXETIL\HYDROCHLOROTHIAZIDE [Concomitant]
     Active Substance: CANDESARTAN CILEXETIL\HYDROCHLOROTHIAZIDE
     Indication: Hypertension
     Dosage: UNK, EACH MORNING
  7. CONCOR 5 PLUS [Concomitant]
     Indication: Hypertension
     Dosage: UNK, DAILY (AT NIGHT)
  8. FOLICAP [Concomitant]
     Indication: Sjogren^s syndrome
     Dosage: UNK, 3/W (3 TIMES A WEEK)
  9. OSTEOCARE [CALCIUM;COLECALCIFEROL;MAGNESIUM;Z [Concomitant]
     Indication: Bone disorder
  10. METHOTREXATE [Concomitant]
     Active Substance: METHOTREXATE
     Indication: Sjogren^s syndrome
     Dosage: 3 TIMES ON THURSDAY, WEEKLY (1/W)

REACTIONS (4)
  - Dehydration [Unknown]
  - Hypotension [Not Recovered/Not Resolved]
  - Dry throat [Unknown]
  - Inappropriate schedule of product administration [Not Recovered/Not Resolved]

NARRATIVE: CASE EVENT DATE: 20120101
